FAERS Safety Report 9089307 (Version 4)
Quarter: 2014Q3

REPORT INFORMATION
  Report Type: Spontaneous
  Country: US (occurrence: US)
  Receive Date: 20130201
  Receipt Date: 20140905
  Transmission Date: 20150326
  Serious: Yes (Disabling)
  Sender: FDA-Public Use
  Company Number: US-009507513-1301USA010907

PATIENT
  Sex: Male

DRUGS (4)
  1. PROPECIA [Suspect]
     Active Substance: FINASTERIDE
     Dosage: 1 MG, UNK
     Route: 048
     Dates: start: 2002, end: 2012
  2. FINASTERIDE. [Suspect]
     Active Substance: FINASTERIDE
     Dosage: 5 MG, DAILY
     Route: 048
     Dates: start: 20080613, end: 20080928
  3. FINASTERIDE. [Suspect]
     Active Substance: FINASTERIDE
     Indication: ALOPECIA
     Dosage: 1 MG, UNK
     Dates: start: 2001, end: 2003
  4. PROPECIA [Suspect]
     Active Substance: FINASTERIDE
     Indication: ALOPECIA
     Dosage: 1 MG, UNK
     Route: 048
     Dates: start: 199910, end: 2001

REACTIONS (7)
  - Anxiety [Not Recovered/Not Resolved]
  - Sexual dysfunction [Unknown]
  - Psychogenic erectile dysfunction [Unknown]
  - Erectile dysfunction [Unknown]
  - Amnesia [Not Recovered/Not Resolved]
  - Emotional distress [Unknown]
  - Marital problem [Not Recovered/Not Resolved]

NARRATIVE: CASE EVENT DATE: 19991001
